FAERS Safety Report 9563375 (Version 1)
Quarter: 2013Q3

REPORT INFORMATION
  Report Type: Spontaneous
  Country: TR (occurrence: TR)
  Receive Date: 20130927
  Receipt Date: 20130927
  Transmission Date: 20140515
  Serious: Yes (Life-Threatening, Hospitalization)
  Sender: FDA-Public Use
  Company Number: TR-ASTRAZENECA-2013SE63035

PATIENT
  Age: 49 Year
  Sex: Male

DRUGS (4)
  1. QUETIAPINE [Suspect]
     Indication: BIPOLAR DISORDER
     Route: 048
  2. QUETIAPINE [Suspect]
     Indication: BIPOLAR DISORDER
     Route: 048
  3. OLANZAPINE [Suspect]
     Indication: BIPOLAR DISORDER
  4. OLANZAPINE [Suspect]
     Indication: BIPOLAR DISORDER

REACTIONS (4)
  - Suicide attempt [Recovered/Resolved]
  - Toxicity to various agents [Recovered/Resolved]
  - Incorrect dose administered [Recovered/Resolved]
  - Rhabdomyolysis [Recovered/Resolved]
